FAERS Safety Report 14094068 (Version 1)
Quarter: 2017Q4

REPORT INFORMATION
  Report Type: Spontaneous
  Country: US (occurrence: US)
  Receive Date: 20171016
  Receipt Date: 20171016
  Transmission Date: 20180321
  Serious: No
  Sender: FDA-Public Use
  Company Number: US-SHIRE-US201720979

PATIENT
  Age: 2 Year
  Sex: Male

DRUGS (2)
  1. ELAPRASE [Suspect]
     Active Substance: IDURSULFASE
     Indication: MUCOPOLYSACCHARIDOSIS II
     Dosage: 7MG PER INJECTION
     Route: 065
     Dates: start: 20170808, end: 20170829
  2. ELAPRASE [Suspect]
     Active Substance: IDURSULFASE
     Dosage: 6MG PER INJECTION
     Route: 065
     Dates: start: 20170829

REACTIONS (3)
  - Rash [Unknown]
  - Discomfort [Unknown]
  - Irritability [Unknown]

NARRATIVE: CASE EVENT DATE: 20170829
